FAERS Safety Report 6935321-1 (Version None)
Quarter: 2010Q3

REPORT INFORMATION
  Report Type: 
  Country: None (occurrence: None)
  Receive Date: 20100823
  Receipt Date: 20100806
  Transmission Date: 20110219
  Serious: Yes (Hospitalization, Other)
  Sender: FDA-Public Use
  Company Number: US-BAYER-200942458NA

PATIENT
  Age: 46 Year
  Sex: Female
  Weight: 127 kg

DRUGS (6)
  1. YAZ [Suspect]
     Indication: VAGINAL HAEMORRHAGE
     Route: 048
     Dates: start: 20070209, end: 20070918
  2. REQUIP [Concomitant]
  3. KLOR-CON [Concomitant]
  4. LASIX [Concomitant]
  5. LEVOTHYROXINE SODIUM [Concomitant]
  6. VITAMINS [Concomitant]

REACTIONS (9)
  - ARTHRALGIA [None]
  - CHEST DISCOMFORT [None]
  - DEEP VEIN THROMBOSIS [None]
  - DYSPNOEA [None]
  - HYPOAESTHESIA [None]
  - JOINT SWELLING [None]
  - PAIN IN EXTREMITY [None]
  - PULMONARY EMBOLISM [None]
  - PULMONARY INFARCTION [None]
